FAERS Safety Report 10389194 (Version 1)
Quarter: 2014Q3

REPORT INFORMATION
  Report Type: Spontaneous
  Country: BR (occurrence: BR)
  Receive Date: 20140818
  Receipt Date: 20140818
  Transmission Date: 20150326
  Serious: Yes (Other)
  Sender: FDA-Public Use
  Company Number: BR-AMGEN-BRASP2014062232

PATIENT
  Age: 55 Year
  Sex: Female

DRUGS (8)
  1. ENBREL [Suspect]
     Active Substance: ETANERCEPT
     Indication: RHEUMATOID ARTHRITIS
     Dosage: 50 MG, ONCE WEEKLY
     Route: 065
     Dates: start: 201406
  2. CELEBRA [Concomitant]
     Active Substance: CELECOXIB
     Indication: RHEUMATOID ARTHRITIS
     Dosage: 1 TABLET DAILY
  3. DEPAKOTE [Concomitant]
     Active Substance: DIVALPROEX SODIUM
     Indication: DEPRESSION
     Dosage: 1 TABLET (500MG) DAILY
  4. CLOZAPINE. [Concomitant]
     Active Substance: CLOZAPINE
     Indication: DEPRESSION
     Dosage: 1 TABLET (12.5 MG), DAILY
  5. ALPRAZOLAM. [Concomitant]
     Active Substance: ALPRAZOLAM
     Indication: DEPRESSION
     Dosage: 1 TABLET (30 MG), DAILY
  6. VELIJA [Concomitant]
     Dosage: 1 TABLET, 30 MG DAILY
  7. AZULFIDINE [Concomitant]
     Active Substance: SULFASALAZINE
     Indication: RHEUMATOID ARTHRITIS
     Dosage: 1 TABLET DAILY
  8. SERTRALINE [Concomitant]
     Active Substance: SERTRALINE HYDROCHLORIDE
     Dosage: UNK
     Dates: end: 20140714

REACTIONS (4)
  - Injection site swelling [Unknown]
  - Fall [Unknown]
  - Foot fracture [Unknown]
  - Injection site erythema [Unknown]

NARRATIVE: CASE EVENT DATE: 2014
